FAERS Safety Report 14081172 (Version 1)
Quarter: 2017Q4

REPORT INFORMATION
  Report Type: Spontaneous
  Country: US (occurrence: US)
  Receive Date: 20171012
  Receipt Date: 20171012
  Transmission Date: 20180321
  Serious: Yes (Life-Threatening, Hospitalization, Disabling, Other)
  Sender: FDA-Public Use
  Company Number: None

PATIENT
  Age: 55 Year
  Sex: Female
  Weight: 90 kg

DRUGS (15)
  1. HYDROMOROHONE [Concomitant]
  2. AUBOGIO [Concomitant]
  3. PREDNISONE. [Concomitant]
     Active Substance: PREDNISONE
  4. VITAMIN D [Concomitant]
     Active Substance: CHOLECALCIFEROL
  5. MULTIPLE VITAMIN [Concomitant]
     Active Substance: VITAMINS
  6. REMICADE [Suspect]
     Active Substance: INFLIXIMAB
  7. TYLENOL [Concomitant]
     Active Substance: ACETAMINOPHEN
  8. WALKER [Concomitant]
  9. DIAZPAM [Concomitant]
  10. ZOFRAN [Concomitant]
     Active Substance: ONDANSETRON HYDROCHLORIDE
  11. ADVIL [Concomitant]
     Active Substance: IBUPROFEN
  12. STELARA [Concomitant]
     Active Substance: USTEKINUMAB
  13. HUMIRA [Suspect]
     Active Substance: ADALIMUMAB
     Indication: CROHN^S DISEASE
     Dosage: SUBCUTANEOUS EVERY 6 WEEKS?
     Route: 058
  14. ENTICORT [Concomitant]
  15. OMEPRAZOLE. [Concomitant]
     Active Substance: OMEPRAZOLE

REACTIONS (4)
  - Multiple sclerosis [None]
  - Fatigue [None]
  - Feeling abnormal [None]
  - Blindness unilateral [None]

NARRATIVE: CASE EVENT DATE: 20150301
